FAERS Safety Report 7893819-6 (Version None)
Quarter: 2011Q4

REPORT INFORMATION
  Report Type: 
  Country: None (occurrence: None)
  Receive Date: 20111104
  Receipt Date: 20111028
  Transmission Date: 20120403
  Serious: Yes (Hospitalization, Other)
  Sender: FDA-Public Use
  Company Number: JP-CEPHALON-2011005650

PATIENT
  Sex: Male
  Weight: 70 kg

DRUGS (7)
  1. ZOPICLONE [Concomitant]
  2. MAGNESIUM OXIDE [Concomitant]
  3. UREA [Concomitant]
  4. PROPIVERINE [Concomitant]
  5. BENDAMUSTINE HCL [Suspect]
     Indication: MANTLE CELL LYMPHOMA
     Route: 042
     Dates: start: 20110117
  6. SULFAMETHOXAZOLE AND TRIMETHOPRIM [Concomitant]
  7. GRANISETRON HCL [Concomitant]
     Dates: start: 20110117, end: 20110308

REACTIONS (13)
  - NEUTROPHIL COUNT DECREASED [None]
  - DECREASED APPETITE [None]
  - PNEUMONIA CYTOMEGALOVIRAL [None]
  - LYMPHOCYTE COUNT DECREASED [None]
  - FEBRILE NEUTROPENIA [None]
  - ANGIOPATHY [None]
  - MALAISE [None]
  - HERPES ZOSTER [None]
  - HYPOCALCAEMIA [None]
  - RASH [None]
  - WHITE BLOOD CELL COUNT DECREASED [None]
  - ANAEMIA [None]
  - NAUSEA [None]
